FAERS Safety Report 14435828 (Version 1)
Quarter: 2018Q1

REPORT INFORMATION
  Report Type: Spontaneous
  Country: FR (occurrence: FR)
  Receive Date: 20180125
  Receipt Date: 20180125
  Transmission Date: 20180509
  Serious: Yes (Other)
  Sender: FDA-Public Use
  Company Number: FR-MERCK KGAA-2040776

PATIENT
  Age: 35 Year
  Weight: 105 kg

DRUGS (5)
  1. NOVOTHYROX [Suspect]
     Active Substance: LEVOTHYROXINE SODIUM
     Indication: PRODUCT USED FOR UNKNOWN INDICATION
     Route: 048
     Dates: start: 201704, end: 201710
  2. EUTHYROX [Concomitant]
     Active Substance: LEVOTHYROXINE SODIUM
     Route: 048
     Dates: start: 201711, end: 201712
  3. NOVOTHYROX [Suspect]
     Active Substance: LEVOTHYROXINE SODIUM
     Route: 048
     Dates: start: 201710, end: 201711
  4. L-THYROXIN-HENNING [Concomitant]
     Route: 048
     Dates: start: 201712, end: 201712
  5. EUTHYROX [Concomitant]
     Active Substance: LEVOTHYROXINE SODIUM
     Route: 048
     Dates: start: 201712

REACTIONS (9)
  - Memory impairment [Recovering/Resolving]
  - Arthralgia [Recovering/Resolving]
  - Diffuse alopecia [Recovered/Resolved]
  - Tachycardia [Recovered/Resolved]
  - Blood thyroid stimulating hormone decreased [Recovered/Resolved]
  - Irritability [Unknown]
  - Hot flush [Recovered/Resolved]
  - Weight increased [Recovered/Resolved]
  - Asthenia [Recovered/Resolved]

NARRATIVE: CASE EVENT DATE: 2017
